FAERS Safety Report 9353571 (Version 1)
Quarter: 2013Q4

REPORT INFORMATION
  Report Type: Spontaneous
  Country: US (occurrence: None)
  Receive Date: 20130617
  Receipt Date: 20130617
  Transmission Date: 20140711
  Serious: Yes (Hospitalization)
  Sender: FDA-Public Use
  Company Number: None

PATIENT
  Age: 43 Year
  Sex: Female
  Weight: 83.1 kg

DRUGS (4)
  1. NULOJIX [Suspect]
     Indication: RENAL TRANSPLANT
     Route: 042
     Dates: start: 20130603
  2. CELLCEPT [Suspect]
     Indication: RENAL TRANSPLANT
     Route: 048
  3. ALEMTUZUMAB [Concomitant]
  4. PREDNISONE [Concomitant]

REACTIONS (3)
  - Rash pustular [None]
  - Pain in extremity [None]
  - Subcutaneous abscess [None]
